FAERS Safety Report 20119209 (Version 1)
Quarter: 2021Q4

REPORT INFORMATION
  Report Type: Spontaneous
  Country: US (occurrence: None)
  Receive Date: 20211125
  Receipt Date: 20211125
  Transmission Date: 20220303
  Serious: Yes (Disabling)
  Sender: FDA-Public Use
  Company Number: None

PATIENT
  Age: 31 Year
  Sex: Female
  Weight: 90 kg

DRUGS (1)
  1. BUPROPION [Suspect]
     Active Substance: BUPROPION
     Indication: Depression
     Route: 048
     Dates: start: 20210920, end: 20211116

REACTIONS (5)
  - Pelvic pain [None]
  - Vulvovaginal discomfort [None]
  - Fungal infection [None]
  - Product substitution issue [None]
  - Product formulation issue [None]

NARRATIVE: CASE EVENT DATE: 20210925
